FAERS Safety Report 15114838 (Version 4)
Quarter: 2018Q3

REPORT INFORMATION
  Report Type: Spontaneous
  Country: JP (occurrence: JP)
  Receive Date: 20180706
  Receipt Date: 20180924
  Transmission Date: 20181010
  Serious: Yes (Other)
  Sender: FDA-Public Use
  Company Number: JP-009507513-1807JPN000489J

PATIENT
  Age: 53 Year
  Sex: Male

DRUGS (2)
  1. RINDERON VG [Concomitant]
     Active Substance: BETAMETHASONE VALERATE\GENTAMICIN SULFATE
     Indication: PRURITUS GENITAL
     Dosage: 5 G, QD
     Route: 003
     Dates: start: 20180628
  2. DESALEX TABLETS 5MG [Suspect]
     Active Substance: DESLORATADINE
     Indication: PRURITUS GENITAL
     Dosage: 5 MG, QD
     Route: 048
     Dates: start: 20180628, end: 20180704

REACTIONS (1)
  - Toxic skin eruption [Recovering/Resolving]

NARRATIVE: CASE EVENT DATE: 20180630
